FAERS Safety Report 15571376 (Version 1)
Quarter: 2018Q4

REPORT INFORMATION
  Report Type: Spontaneous
  Country: US (occurrence: US)
  Receive Date: 20181026
  Receipt Date: 20181026
  Transmission Date: 20190205
  Serious: No
  Sender: FDA-Public Use
  Company Number: None

PATIENT
  Age: 48 Year
  Sex: Male

DRUGS (1)
  1. TREMFYA [Suspect]
     Active Substance: GUSELKUMAB
     Dates: start: 201806, end: 201808

REACTIONS (3)
  - Injection site plaque [None]
  - Drug hypersensitivity [None]
  - Skin plaque [None]

NARRATIVE: CASE EVENT DATE: 20181025
